FAERS Safety Report 11394793 (Version 5)
Quarter: 2015Q4

REPORT INFORMATION
  Report Type: Spontaneous
  Country: JP (occurrence: JP)
  Receive Date: 20150819
  Receipt Date: 20151228
  Transmission Date: 20160304
  Serious: Yes (Hospitalization)
  Sender: FDA-Public Use
  Company Number: JP-PFIZER INC-2015263136

PATIENT
  Age: 77 Year
  Sex: Female
  Weight: 43 kg

DRUGS (1)
  1. SUTENT [Suspect]
     Active Substance: SUNITINIB MALATE
     Indication: GASTROINTESTINAL STROMAL CANCER
     Dosage: 50 MG, DAILY
     Route: 048
     Dates: start: 20150717, end: 20150728

REACTIONS (9)
  - Pyrexia [Recovering/Resolving]
  - Nausea [Recovering/Resolving]
  - Disseminated intravascular coagulation [Recovered/Resolved]
  - Stomatitis [Recovering/Resolving]
  - VIIth nerve paralysis [Unknown]
  - Platelet count decreased [Recovered/Resolved]
  - Diarrhoea [Recovered/Resolved]
  - VIth nerve paralysis [Recovered/Resolved]
  - Musculoskeletal stiffness [Unknown]

NARRATIVE: CASE EVENT DATE: 20150728
